FAERS Safety Report 6429945-8 (Version None)
Quarter: 2009Q4

REPORT INFORMATION
  Report Type: 
  Country: None (occurrence: None)
  Receive Date: 20091106
  Receipt Date: 20091027
  Transmission Date: 20100525
  Serious: Yes (Hospitalization)
  Sender: FDA-Public Use
  Company Number: US-ABBOTT-08P-163-0440252-00

PATIENT
  Sex: Female
  Weight: 62.652 kg

DRUGS (13)
  1. HUMIRA [Suspect]
     Indication: RHEUMATOID ARTHRITIS
     Route: 058
     Dates: start: 20060801
  2. HUMIRA [Suspect]
     Dates: start: 20060101, end: 20061231
  3. HUMIRA [Suspect]
     Dates: start: 20070101
  4. HUMIRA [Suspect]
     Dates: start: 20070101, end: 20080218
  5. HUMIRA [Suspect]
     Dates: end: 20090901
  6. METHOTREXATE [Concomitant]
     Indication: RHEUMATOID ARTHRITIS
     Route: 048
  7. FOLIC ACID [Concomitant]
     Indication: RHEUMATOID ARTHRITIS
     Route: 048
  8. BONIVA [Concomitant]
     Indication: OSTEOPOROSIS PROPHYLAXIS
     Route: 048
  9. METAMUCIL [Concomitant]
     Indication: COLITIS
     Route: 048
  10. METAMUCIL [Concomitant]
     Indication: PROPHYLAXIS
  11. MICARDIS [Concomitant]
     Indication: HYPERTENSION
     Route: 048
  12. SPIRIVA [Concomitant]
     Indication: EMPHYSEMA
  13. ADVAIR DISKUS 100/50 [Concomitant]
     Indication: EMPHYSEMA
     Route: 048

REACTIONS (12)
  - ABDOMINAL SYMPTOM [None]
  - CHILLS [None]
  - COLITIS [None]
  - COUGH [None]
  - DIARRHOEA [None]
  - DYSPNOEA [None]
  - DYSURIA [None]
  - FEELING ABNORMAL [None]
  - MALAISE [None]
  - URINARY TRACT INFECTION [None]
  - VISION BLURRED [None]
  - VOMITING [None]
